FAERS Safety Report 16979876 (Version 1)
Quarter: 2019Q4

REPORT INFORMATION
  Report Type: Report from Study
  Country: RU (occurrence: RU)
  Receive Date: 20191031
  Receipt Date: 20191031
  Transmission Date: 20200122
  Serious: Yes (Other)
  Sender: FDA-Public Use
  Company Number: RU-ACTELION-A-CH2019-197628

PATIENT
  Sex: Male

DRUGS (4)
  1. OXYGEN. [Suspect]
     Active Substance: OXYGEN
     Indication: PULMONARY ARTERIAL HYPERTENSION
     Route: 065
  2. VENTAVIS [Suspect]
     Active Substance: ILOPROST
     Indication: PULMONARY ARTERIAL HYPERTENSION
     Route: 055
  3. OPSUMIT [Suspect]
     Active Substance: MACITENTAN
     Indication: PULMONARY ARTERIAL HYPERTENSION
     Route: 048
  4. RIOCIGUAT. [Suspect]
     Active Substance: RIOCIGUAT
     Indication: PULMONARY ARTERIAL HYPERTENSION
     Route: 065

REACTIONS (3)
  - Swelling [Unknown]
  - Vessel perforation [Unknown]
  - Haemorrhage [Unknown]
